FAERS Safety Report 11497682 (Version 1)
Quarter: 2015Q3

REPORT INFORMATION
  Report Type: Spontaneous
  Country: US (occurrence: US)
  Receive Date: 20150911
  Receipt Date: 20150911
  Transmission Date: 20151125
  Serious: Yes (Other)
  Sender: FDA-Public Use
  Company Number: US-ELI_LILLY_AND_COMPANY-US201509001126

PATIENT
  Sex: Male

DRUGS (1)
  1. CYMBALTA [Suspect]
     Active Substance: DULOXETINE HYDROCHLORIDE
     Indication: PRODUCT USED FOR UNKNOWN INDICATION
     Dosage: UNK, UNKNOWN
     Route: 065

REACTIONS (10)
  - Drug withdrawal syndrome [Unknown]
  - Seizure [Unknown]
  - Dizziness [Unknown]
  - Insomnia [Unknown]
  - Paraesthesia [Unknown]
  - Restlessness [Unknown]
  - Vertigo [Unknown]
  - Headache [Unknown]
  - Muscle twitching [Unknown]
  - Psychomotor hyperactivity [Unknown]
